FAERS Safety Report 18437914 (Version 1)
Quarter: 2020Q4

REPORT INFORMATION
  Report Type: Spontaneous
  Country: US (occurrence: US)
  Receive Date: 20201029
  Receipt Date: 20201029
  Transmission Date: 20210114
  Serious: No
  Sender: FDA-Public Use
  Company Number: US-BIOGEN-2020BI00870543

PATIENT
  Sex: Female
  Weight: 121.67 kg

DRUGS (1)
  1. TECFIDERA [Suspect]
     Active Substance: DIMETHYL FUMARATE
     Indication: MULTIPLE SCLEROSIS
     Route: 048
     Dates: start: 20200316

REACTIONS (6)
  - Product dose omission in error [Recovered/Resolved]
  - Dizziness [Unknown]
  - Dyschezia [Not Recovered/Not Resolved]
  - Rash [Unknown]
  - Stress [Unknown]
  - Disturbance in attention [Unknown]
